FAERS Safety Report 10797535 (Version 1)
Quarter: 2015Q1

REPORT INFORMATION
  Report Type: Report from Study
  Country: US (occurrence: US)
  Receive Date: 20150216
  Receipt Date: 20150216
  Transmission Date: 20150721
  Serious: Yes (Hospitalization)
  Sender: FDA-Public Use
  Company Number: US-MYLANLABS-2015M1004451

PATIENT

DRUGS (1)
  1. LAMOTRIGINE. [Suspect]
     Active Substance: LAMOTRIGINE
     Dosage: 400MG
     Route: 048

REACTIONS (7)
  - Accidental exposure to product by child [Recovering/Resolving]
  - Confusional state [Recovering/Resolving]
  - Agitation [Recovering/Resolving]
  - Dysarthria [Recovering/Resolving]
  - Crying [Recovering/Resolving]
  - Vomiting [Recovering/Resolving]
  - Toxicity to various agents [Recovering/Resolving]
